FAERS Safety Report 4972178-2 (Version None)
Quarter: 2006Q2

REPORT INFORMATION
  Report Type: 
  Country: None (occurrence: None)
  Receive Date: 20060413
  Receipt Date: 20060410
  Transmission Date: 20061013
  Serious: Yes (Hospitalization)
  Sender: FDA-Public Use
  Company Number: US-GLAXOSMITHKLINE-A0601185A

PATIENT
  Age: 68 Year
  Sex: Female

DRUGS (5)
  1. ADVAIR DISKUS 100/50 [Suspect]
     Indication: BRONCHITIS CHRONIC
     Dosage: 1PUFF TWICE PER DAY
     Route: 055
     Dates: start: 20030101
  2. AMI-TEX LA [Suspect]
     Indication: DRUG USE FOR UNKNOWN INDICATION
     Dates: start: 20060301, end: 20060301
  3. PREDNISONE 50MG TAB [Suspect]
     Indication: DRUG USE FOR UNKNOWN INDICATION
     Dosage: 10MG TWICE PER DAY
     Route: 048
     Dates: start: 20060101, end: 20060101
  4. ESTROGEN PATCH [Concomitant]
  5. VITAMINS [Concomitant]

REACTIONS (4)
  - DYSPHONIA [None]
  - HYPERTENSION [None]
  - ORAL SOFT TISSUE DISORDER [None]
  - THROAT IRRITATION [None]
